FAERS Safety Report 18632144 (Version 2)
Quarter: 2021Q4

REPORT INFORMATION
  Report Type: Report from Study
  Country: AT (occurrence: AT)
  Receive Date: 20201218
  Receipt Date: 20211012
  Transmission Date: 20220303
  Serious: Yes (Hospitalization, Other)
  Sender: FDA-Public Use
  Company Number: None

PATIENT
  Age: 54 Year
  Sex: Female
  Weight: 75 kg

DRUGS (24)
  1. CAPECITABINE [Suspect]
     Active Substance: CAPECITABINE
     Indication: Breast cancer
     Dosage: OTHER
     Route: 048
     Dates: start: 20191126, end: 20191218
  2. METHOTREXATE [Suspect]
     Active Substance: METHOTREXATE
     Indication: HER2 positive breast cancer
     Route: 048
     Dates: start: 20200219, end: 20200309
  3. PACLITAXEL [Suspect]
     Active Substance: PACLITAXEL
     Indication: HER2 positive breast cancer
     Route: 042
     Dates: start: 20180612, end: 20180612
  4. CYCLOPHOSPHAMIDE [Suspect]
     Active Substance: CYCLOPHOSPHAMIDE
     Indication: HER2 positive breast cancer
     Route: 048
     Dates: start: 20200219, end: 20200309
  5. ABRAXANE [Suspect]
     Active Substance: PACLITAXEL
     Indication: HER2 positive breast cancer
     Dosage: DOSE ON 08/MAY/2018?MOST RECENT DOSE PRIOR TO THE EVENT: 07/DEC/2018
     Route: 042
     Dates: start: 20180416
  6. NAVELBINE [Suspect]
     Active Substance: VINORELBINE TARTRATE
     Indication: HER2 positive breast cancer
     Dosage: RECENT DOSE: 28/OCT/2019
     Route: 048
     Dates: start: 20191011, end: 20191025
  7. NERATINIB [Suspect]
     Active Substance: NERATINIB
     Indication: Breast cancer
     Route: 048
     Dates: start: 20200108, end: 20200118
  8. PERTUZUMAB [Suspect]
     Active Substance: PERTUZUMAB
     Indication: HER2 positive breast cancer
     Dosage: MOST RECENT DOSE PRIOR TO THE EVENT: 23/APR/2018
     Route: 042
     Dates: start: 20180328, end: 20180328
  9. TAXOL [Suspect]
     Active Substance: PACLITAXEL
     Indication: HER2 positive breast cancer
     Dosage: WEEKLY?RECENT DOSE ON 09/APR/2018
     Route: 042
     Dates: start: 20180328, end: 20180409
  10. TRASTUZUMAB [Suspect]
     Active Substance: TRASTUZUMAB
     Indication: HER2 positive breast cancer
     Dosage: MOST RECENT DOSE PRIOR TO THE EVENT: 26/JUN/2018
     Route: 042
     Dates: start: 20180328, end: 20180328
  11. ADO-TRASTUZUMAB EMTANSINE [Suspect]
     Active Substance: ADO-TRASTUZUMAB EMTANSINE
     Indication: HER2 positive breast cancer
     Dosage: DOSE ON 17/MAY/2019?MOST RECENT DOSE PRIOR TO THE EVENT: 28/JUN/2019
     Route: 042
     Dates: start: 20190131, end: 20190517
  12. XGEVA [Concomitant]
     Active Substance: DENOSUMAB
     Dates: start: 20191219
  13. CAL D VITA [Concomitant]
     Dosage: ONGOING  CHECKED
     Dates: start: 20190425
  14. PANTOPRAZOLE SODIUM [Concomitant]
     Active Substance: PANTOPRAZOLE SODIUM
     Dosage: ONGOING CHECKED
     Dates: start: 20191011, end: 20200410
  15. BEPANTHEN [Concomitant]
     Indication: Conjunctivitis
     Dates: start: 20180619
  16. DEXAMETHASONE [Concomitant]
     Active Substance: DEXAMETHASONE
     Dates: start: 20190628, end: 20190830
  17. KYTRIL [Concomitant]
     Active Substance: GRANISETRON HYDROCHLORIDE
     Dosage: ONGOING NOT CHECKED
     Dates: start: 20190628, end: 20190830
  18. ENTEROBENE [Concomitant]
     Dates: start: 20200108, end: 20200113
  19. DEXPANTHENOL [Concomitant]
     Active Substance: DEXPANTHENOL
     Indication: Onycholysis
     Dates: start: 20180725
  20. OCTENIDINE\PHENOXYETHANOL [Concomitant]
     Active Substance: OCTENIDINE\PHENOXYETHANOL
     Indication: Onycholysis
     Dates: start: 20180725
  21. ZOFRAN [Concomitant]
     Active Substance: ONDANSETRON HYDROCHLORIDE
  22. METAMIZOLE SODIUM [Concomitant]
     Active Substance: METAMIZOLE SODIUM
     Indication: Product used for unknown indication
     Dates: start: 20200224, end: 20200410
  23. HYDROMORPHONE HYDROCHLORIDE [Concomitant]
     Active Substance: HYDROMORPHONE HYDROCHLORIDE
  24. HYDROMORPHONE HYDROCHLORIDE [Concomitant]
     Active Substance: HYDROMORPHONE HYDROCHLORIDE
     Indication: Product used for unknown indication
     Dates: start: 20200226, end: 20200311

REACTIONS (10)
  - Breast cancer metastatic [Recovering/Resolving]
  - Pain of skin [Recovered/Resolved]
  - Diarrhoea [Recovered/Resolved]
  - C-reactive protein increased [Recovered/Resolved]
  - Febrile neutropenia [Recovered/Resolved]
  - Dyspnoea [Recovered/Resolved]
  - Stomatitis [Recovered/Resolved]
  - Overdose [Unknown]
  - Intentional product use issue [Unknown]
  - Tumour pain [Recovered/Resolved]

NARRATIVE: CASE EVENT DATE: 20190920
